FAERS Safety Report 19270556 (Version 2)
Quarter: 2021Q3

REPORT INFORMATION
  Report Type: Spontaneous
  Country: US (occurrence: US)
  Receive Date: 20210518
  Receipt Date: 20210707
  Transmission Date: 20211014
  Serious: Yes (Hospitalization, Other)
  Sender: FDA-Public Use
  Company Number: US-ALXN-A202105661

PATIENT
  Sex: Female

DRUGS (1)
  1. ULTOMIRIS [Suspect]
     Active Substance: RAVULIZUMAB-CWVZ
     Indication: ATYPICAL HAEMOLYTIC URAEMIC SYNDROME
     Route: 065

REACTIONS (6)
  - Hypertension [Unknown]
  - Thrombocytopenia [Unknown]
  - Haemolysis [Unknown]
  - Acute kidney injury [Unknown]
  - Anaemia [Unknown]
  - Haemophagocytic lymphohistiocytosis [Unknown]
